FAERS Safety Report 7692973-9 (Version None)
Quarter: 2011Q3

REPORT INFORMATION
  Report Type: 
  Country: None (occurrence: None)
  Receive Date: 20110819
  Receipt Date: 20110808
  Transmission Date: 20111222
  Serious: Yes (Other)
  Sender: FDA-Public Use
  Company Number: FI-NOVOPROD-329910

PATIENT

DRUGS (6)
  1. LANTUS [Concomitant]
     Indication: TYPE 2 DIABETES MELLITUS
     Dosage: 56 IU, QD IN THE EVENING
     Route: 058
     Dates: start: 20040101
  2. ORLOC [Concomitant]
     Dosage: 1X1
     Route: 048
  3. VICTOZA [Suspect]
     Indication: TYPE 2 DIABETES MELLITUS
     Dosage: 1.2 MG, QD
     Route: 058
     Dates: start: 20100909, end: 20101101
  4. RENITEC COMP [Concomitant]
     Dosage: 1X1
     Route: 048
  5. LANTUS [Concomitant]
     Dosage: 26 IU, QD
     Route: 058
  6. NORVASC [Concomitant]
     Dosage: 1X1
     Route: 048

REACTIONS (1)
  - B-CELL LYMPHOMA [None]
